FAERS Safety Report 5328302-5 (Version None)
Quarter: 2007Q2

REPORT INFORMATION
  Report Type: 
  Country: None (occurrence: None)
  Receive Date: 20070515
  Receipt Date: 20070515
  Transmission Date: 20071010
  Serious: Yes (Life-Threatening, Other)
  Sender: FDA-Public Use
  Company Number: None

PATIENT
  Age: 36 Year
  Sex: Male
  Weight: 111.1313 kg

DRUGS (2)
  1. CYMBALTA [Suspect]
     Indication: PAIN
     Dosage: 30MG QD PO
     Route: 048
     Dates: start: 20061229, end: 20070201
  2. CYMBALTA [Suspect]
     Indication: PAIN
     Dosage: 60MG QD PO
     Route: 048
     Dates: start: 20070201, end: 20070301

REACTIONS (16)
  - AGITATION [None]
  - ANGER [None]
  - DEPRESSION [None]
  - FAMILY STRESS [None]
  - FEELINGS OF WORTHLESSNESS [None]
  - HEADACHE [None]
  - MARITAL PROBLEM [None]
  - NAUSEA [None]
  - NIGHTMARE [None]
  - PARAESTHESIA [None]
  - PARANOIA [None]
  - PSYCHOTIC DISORDER [None]
  - STRESS AT WORK [None]
  - SUICIDAL IDEATION [None]
  - VERTIGO [None]
  - WEIGHT DECREASED [None]
